FAERS Safety Report 9124292 (Version 3)
Quarter: 2013Q2

REPORT INFORMATION
  Report Type: Spontaneous
  Country: US (occurrence: US)
  Receive Date: 20130227
  Receipt Date: 20130508
  Transmission Date: 20140414
  Serious: Yes (Hospitalization, Other)
  Sender: FDA-Public Use
  Company Number: US-ASTRAZENECA-2012SE85203

PATIENT
  Age: 27462 Day
  Sex: Female
  Weight: 76.7 kg

DRUGS (22)
  1. BRILINTA [Suspect]
     Indication: PERCUTANEOUS CORONARY INTERVENTION
     Route: 048
     Dates: start: 20120924
  2. LISINOPRIL/HCTZ [Suspect]
     Dosage: 10+12.5 MG, DAILY
     Route: 048
  3. METOPROLOL SUCCINATE [Suspect]
     Route: 048
  4. OMEPRAZOLE [Suspect]
     Route: 048
  5. CRESTOR [Suspect]
     Indication: LIPIDS ABNORMAL
     Route: 048
     Dates: start: 20121008
  6. TRIMOX [Suspect]
     Route: 065
  7. BIAXIN [Suspect]
     Route: 065
  8. PAROXETINE [Concomitant]
     Route: 048
  9. PRAVASTATIN [Concomitant]
     Route: 048
  10. ASPIRIN [Concomitant]
     Route: 048
  11. PROBIOTIC [Concomitant]
     Dosage: DAILY
  12. STOOL SOFTNER [Concomitant]
     Indication: FAECES HARD
     Route: 048
  13. COLACE [Concomitant]
  14. HEPARIN [Concomitant]
  15. PAXIL [Concomitant]
  16. METOPROLOL TARTRATE [Concomitant]
     Route: 048
  17. NITROGLYCERIN [Concomitant]
     Route: 060
  18. PRILOSEC [Concomitant]
     Route: 048
  19. MECLIZINE [Concomitant]
     Dosage: 25 08PM
  20. MIRALAX [Concomitant]
  21. MAGNESIUM [Concomitant]
  22. FISH OIL [Concomitant]

REACTIONS (48)
  - Angina unstable [Unknown]
  - Coronary artery stenosis [Unknown]
  - Coronary artery disease [Unknown]
  - Angina pectoris [Unknown]
  - Carotid artery occlusion [Unknown]
  - Carotid artery stenosis [Unknown]
  - Carotid artery disease [Unknown]
  - Dyspnoea [Unknown]
  - Mitral valve incompetence [Unknown]
  - Diastolic dysfunction [Unknown]
  - Drug hypersensitivity [Unknown]
  - Essential hypertension [Unknown]
  - Hypercholesterolaemia [Unknown]
  - Fatigue [Unknown]
  - Nasal congestion [Unknown]
  - Sinus headache [Unknown]
  - Epistaxis [Unknown]
  - Pharyngeal oedema [Unknown]
  - Nausea [Unknown]
  - Muscular weakness [Unknown]
  - Myalgia [Unknown]
  - Muscle spasms [Unknown]
  - Type 2 diabetes mellitus [Unknown]
  - Hyperlipidaemia [Unknown]
  - Vitamin D deficiency [Unknown]
  - Arteriosclerosis coronary artery [Unknown]
  - Chest pain [Unknown]
  - Paraesthesia [Unknown]
  - Pyrexia [Unknown]
  - Chills [Unknown]
  - Appetite disorder [Unknown]
  - Headache [Unknown]
  - Dizziness [Unknown]
  - Cough [Unknown]
  - Abdominal pain [Unknown]
  - Depression [Unknown]
  - Anxiety [Unknown]
  - Crying [Unknown]
  - Mood swings [Unknown]
  - Irritability [Unknown]
  - Arthropod bite [Unknown]
  - Varicose vein [Unknown]
  - Stress urinary incontinence [Unknown]
  - Osteoarthritis [Unknown]
  - Myositis [Unknown]
  - Osteopenia [Unknown]
  - Dyspepsia [Unknown]
  - Glycosylated haemoglobin increased [Unknown]
